FAERS Safety Report 6890670-0 (Version None)
Quarter: 2010Q3

REPORT INFORMATION
  Report Type: 
  Country: None (occurrence: None)
  Receive Date: 20100731
  Receipt Date: 20090203
  Transmission Date: 20110219
  Serious: No
  Sender: FDA-Public Use
  Company Number: US-PFIZER INC-2009164956

PATIENT
  Age: 85 Year
  Sex: Male
  Weight: 90.703 kg

DRUGS (7)
  1. LIPITOR [Suspect]
     Indication: BLOOD CHOLESTEROL INCREASED
     Dosage: UNK
     Dates: start: 20080701
  2. ADVAIR DISKUS 100/50 [Concomitant]
     Dosage: UNK
  3. FLONASE [Concomitant]
     Dosage: UNK
  4. MICARDIS [Concomitant]
     Dosage: UNK
  5. ALLEGRA [Concomitant]
     Dosage: UNK
  6. DILANTIN [Concomitant]
     Dosage: UNK
  7. CENTRUM SILVER [Concomitant]
     Dosage: UNK

REACTIONS (1)
  - CONSTIPATION [None]
